FAERS Safety Report 7006940-1 (Version None)
Quarter: 2010Q3

REPORT INFORMATION
  Report Type: 
  Country: None (occurrence: None)
  Receive Date: 20100922
  Receipt Date: 20100913
  Transmission Date: 20110219
  Serious: Yes (Other)
  Sender: FDA-Public Use
  Company Number: US-JNJFOC-20100701528

PATIENT
  Sex: Female

DRUGS (2)
  1. LEVAQUIN [Suspect]
     Indication: PNEUMONIA
     Route: 048
  2. PREDNISONE [Suspect]
     Indication: PNEUMONIA
     Route: 065

REACTIONS (2)
  - TENDON RUPTURE [None]
  - TROCHANTERIC SYNDROME [None]
